FAERS Safety Report 9743268 (Version 1)
Quarter: 2013Q4

REPORT INFORMATION
  Report Type: Spontaneous
  Country: US (occurrence: US)
  Receive Date: 20131210
  Receipt Date: 20131210
  Transmission Date: 20140711
  Serious: No
  Sender: FDA-Public Use
  Company Number: US-GILEAD-2009-0025484

PATIENT
  Age: 76 Year
  Sex: Male

DRUGS (14)
  1. LETAIRIS [Suspect]
     Indication: PULMONARY ARTERIAL HYPERTENSION
     Route: 048
     Dates: start: 20091106
  2. PREDNISONE [Concomitant]
  3. LIPITOR [Concomitant]
  4. FORADIL [Concomitant]
  5. MUCOMYST [Concomitant]
  6. LORAZEPAM [Concomitant]
  7. PLAVIX [Concomitant]
  8. ALBUTEROL [Concomitant]
  9. ECOTRIN [Concomitant]
  10. SPIRIVA [Concomitant]
  11. METAMUCIL [Concomitant]
  12. MULTIVITAMIN [Concomitant]
  13. TYLENOL [Concomitant]
  14. VITAMIN C [Concomitant]

REACTIONS (1)
  - Local swelling [Unknown]
